FAERS Safety Report 14990856 (Version 1)
Quarter: 2018Q2

REPORT INFORMATION
  Report Type: Report from Study
  Country: PH (occurrence: PH)
  Receive Date: 20180608
  Receipt Date: 20180608
  Transmission Date: 20180711
  Serious: Yes (Death, Hospitalization)
  Sender: FDA-Public Use
  Company Number: PH-OTSUKA-2018_014601

PATIENT
  Age: 65 Year
  Sex: Male

DRUGS (3)
  1. CILOSTAZOL. [Suspect]
     Active Substance: CILOSTAZOL
     Indication: PERIPHERAL VASCULAR DISORDER
  2. CILOSTAZOL. [Suspect]
     Active Substance: CILOSTAZOL
     Indication: CEREBROVASCULAR ACCIDENT
     Dosage: UNK
     Route: 065
  3. CILOSTAZOL. [Suspect]
     Active Substance: CILOSTAZOL
     Indication: HYPERTENSION

REACTIONS (3)
  - Death [Fatal]
  - Product use in unapproved indication [Unknown]
  - Hospitalisation [Unknown]

NARRATIVE: CASE EVENT DATE: 20180516
